FAERS Safety Report 10722673 (Version 2)
Quarter: 2015Q2

REPORT INFORMATION
  Report Type: Spontaneous
  Country: JP (occurrence: JP)
  Receive Date: 20150120
  Receipt Date: 20150422
  Transmission Date: 20150821
  Serious: Yes (Other)
  Sender: FDA-Public Use
  Company Number: JP-GLAXOSMITHKLINE-JP2014JPN032335

PATIENT
  Age: 66 Year
  Sex: Male
  Weight: 50 kg

DRUGS (3)
  1. ZEFIX [Suspect]
     Active Substance: LAMIVUDINE
     Indication: CHRONIC HEPATITIS B
     Dosage: UNK
     Route: 048
     Dates: start: 2001
  2. HEPSERA [Suspect]
     Active Substance: ADEFOVIR DIPIVOXIL
     Indication: CHRONIC HEPATITIS B
     Dosage: UNK
     Route: 048
     Dates: start: 200509
  3. GLIMEPIRIDE. [Concomitant]
     Active Substance: GLIMEPIRIDE
     Indication: DIABETES MELLITUS
     Dosage: 1 MG, UNK

REACTIONS (13)
  - Muscular weakness [Unknown]
  - Hypophosphataemia [Unknown]
  - Metabolic acidosis [Unknown]
  - Lumbar vertebral fracture [Unknown]
  - Osteomalacia [Unknown]
  - Blood alkaline phosphatase increased [Unknown]
  - Blood uric acid decreased [Unknown]
  - Bone density decreased [Unknown]
  - Fanconi syndrome [Unknown]
  - Back pain [Recovering/Resolving]
  - Aminoaciduria [Unknown]
  - Muscular weakness [Unknown]
  - Gait disturbance [Recovering/Resolving]

NARRATIVE: CASE EVENT DATE: 201305
